FAERS Safety Report 6231062-7 (Version None)
Quarter: 2009Q2

REPORT INFORMATION
  Report Type: 
  Country: None (occurrence: None)
  Receive Date: 20090616
  Receipt Date: 20071001
  Transmission Date: 20091009
  Serious: Yes (Other)
  Sender: FDA-Public Use
  Company Number: US-ASTRAZENECA-2006UW23131

PATIENT
  Sex: Female
  Weight: 114.8 kg

DRUGS (15)
  1. SEROQUEL [Suspect]
     Indication: DEPRESSION
     Dosage: 100-300 MG
     Route: 048
     Dates: start: 19990729
  2. SEROQUEL [Suspect]
     Route: 048
     Dates: end: 20020802
  3. RISPERDAL [Concomitant]
  4. PROZAC [Concomitant]
  5. HUMULIN R [Concomitant]
     Dosage: 70/30
     Dates: start: 19991101
  6. ALBUTEROL [Concomitant]
     Dosage: 90 MCG INHALER
     Dates: start: 19990813
  7. GLUCOPHAGE [Concomitant]
     Dates: start: 19990904
  8. DITROPAN XL [Concomitant]
     Dates: start: 20060811
  9. ACTOS [Concomitant]
     Dates: start: 20060811
  10. WELLBUTRIN [Concomitant]
     Dates: start: 20010518
  11. NEURONTIN [Concomitant]
     Route: 048
     Dates: start: 20050925
  12. XANAX [Concomitant]
     Dosage: 1-2 MG ONE OR TWO TID PRN
     Dates: start: 20070129
  13. LORTAB [Concomitant]
     Dates: start: 20010518
  14. GLUCOVANCE [Concomitant]
     Dosage: 5/500 MG TWO TID PRN, BID
     Dates: start: 20010518
  15. NAPROXEN SODIUM [Concomitant]
     Route: 048
     Dates: start: 20050925

REACTIONS (4)
  - DIABETES MELLITUS [None]
  - DIABETIC KETOACIDOSIS [None]
  - DIABETIC NEUROPATHY [None]
  - TYPE 1 DIABETES MELLITUS [None]
